FAERS Safety Report 22632398 (Version 7)
Quarter: 2024Q2

REPORT INFORMATION
  Report Type: Report from Study
  Country: US (occurrence: US)
  Receive Date: 20230623
  Receipt Date: 20240506
  Transmission Date: 20240716
  Serious: Yes (Other)
  Sender: FDA-Public Use
  Company Number: US-002147023-NVSC2023US141669

PATIENT
  Sex: Male

DRUGS (1)
  1. KESIMPTA [Suspect]
     Active Substance: OFATUMUMAB
     Indication: Relapsing multiple sclerosis
     Dosage: UNK
     Route: 065
     Dates: start: 20230601

REACTIONS (5)
  - Relapsing multiple sclerosis [Unknown]
  - Condition aggravated [Unknown]
  - Influenza like illness [Unknown]
  - Headache [Unknown]
  - Fatigue [Unknown]
